FAERS Safety Report 7767551-3 (Version None)
Quarter: 2011Q3

REPORT INFORMATION
  Report Type: 
  Country: None (occurrence: None)
  Receive Date: 20110922
  Receipt Date: 20110917
  Transmission Date: 20111222
  Serious: Yes (Death, Hospitalization, Other)
  Sender: FDA-Public Use
  Company Number: US-ASTELLAS-2011US005184

PATIENT
  Age: 56 Year
  Sex: Male
  Weight: 54 kg

DRUGS (2)
  1. ERLOTINIB HYDROCHLORIDE [Suspect]
     Indication: LUNG ADENOCARCINOMA
     Dosage: 100 MG, QHS
     Route: 048
     Dates: start: 20110613, end: 20110811
  2. AZD6244 HYDROGEN SULFATE [Suspect]
     Indication: LUNG ADENOCARCINOMA
     Dosage: 150 MG, UID/QD
     Route: 048
     Dates: start: 20110613, end: 20110811

REACTIONS (9)
  - LEFT VENTRICULAR DYSFUNCTION [None]
  - WHEEZING [None]
  - DYSPNOEA [None]
  - DEATH [None]
  - HYPERTENSION [None]
  - PNEUMONIA [None]
  - HAEMOPTYSIS [None]
  - ATRIAL FIBRILLATION [None]
  - CHRONIC OBSTRUCTIVE PULMONARY DISEASE [None]
